FAERS Safety Report 8516971-8 (Version None)
Quarter: 2012Q3

REPORT INFORMATION
  Report Type: 
  Country: None (occurrence: None)
  Receive Date: 20120718
  Receipt Date: 20120716
  Transmission Date: 20120928
  Serious: No
  Sender: FDA-Public Use
  Company Number: US-PFIZER INC-2012171909

PATIENT
  Sex: Male

DRUGS (1)
  1. NICOTROL [Suspect]
     Indication: SMOKING CESSATION THERAPY
     Dosage: UNK, ONCE
     Dates: start: 20120716

REACTIONS (2)
  - DRUG INTOLERANCE [None]
  - HEPATIC PAIN [None]
